FAERS Safety Report 16172086 (Version 1)
Quarter: 2019Q2

REPORT INFORMATION
  Report Type: Report from Study
  Country: GB (occurrence: GB)
  Receive Date: 20190409
  Receipt Date: 20190409
  Transmission Date: 20190711
  Serious: Yes (Hospitalization, Other)
  Sender: FDA-Public Use
  Company Number: GB-AMGEN-GBRSL2019052308

PATIENT
  Age: 76 Year
  Sex: Male

DRUGS (1)
  1. ARANESP [Suspect]
     Active Substance: DARBEPOETIN ALFA
     Indication: PRODUCT USED FOR UNKNOWN INDICATION
     Dosage: UNK
     Route: 065

REACTIONS (7)
  - Infection [Unknown]
  - Renal transplant [Unknown]
  - Cellulitis [Unknown]
  - Pancreas transplant [Unknown]
  - Amnesia [Unknown]
  - Tuberculosis [Unknown]
  - Mineral supplementation [Unknown]

NARRATIVE: CASE EVENT DATE: 2007
